FAERS Safety Report 14381977 (Version 2)
Quarter: 2018Q1

REPORT INFORMATION
  Report Type: Spontaneous
  Country: US (occurrence: US)
  Receive Date: 20180112
  Receipt Date: 20180216
  Transmission Date: 20180509
  Serious: Yes (Disabling, Other)
  Sender: FDA-Public Use
  Company Number: US-REGENERON PHARMACEUTICALS, INC.-2018-10294

PATIENT

DRUGS (3)
  1. EYLEA [Suspect]
     Active Substance: AFLIBERCEPT
     Indication: DIABETIC RETINAL OEDEMA
     Dosage: 2 MG, LEFT EYE, VARIED BETWEEN 6-8 WEEKS
     Route: 031
     Dates: start: 2017
  2. EYLEA [Suspect]
     Active Substance: AFLIBERCEPT
     Dosage: 2 MG, LEFT EYE
     Route: 031
     Dates: start: 20180102, end: 20180102
  3. EYLEA [Suspect]
     Active Substance: AFLIBERCEPT
     Indication: DIABETIC RETINOPATHY
     Dosage: 2 MG, RIGHT EYE, VARIED BETWEEN 6-8 WEEKS
     Route: 031
     Dates: start: 2016

REACTIONS (6)
  - Eye inflammation [Unknown]
  - Vitreal cells [Unknown]
  - Intraocular pressure decreased [Unknown]
  - Anterior chamber cell [Unknown]
  - Visual impairment [Unknown]
  - Blindness unilateral [Unknown]

NARRATIVE: CASE EVENT DATE: 201801
